FAERS Safety Report 15572255 (Version 1)
Quarter: 2018Q4

REPORT INFORMATION
  Report Type: Spontaneous
  Country: US (occurrence: US)
  Receive Date: 20181031
  Receipt Date: 20181031
  Transmission Date: 20190205
  Serious: Yes (Other)
  Sender: FDA-Public Use
  Company Number: US-009507513-1810USA010082

PATIENT
  Sex: Female
  Weight: 63.95 kg

DRUGS (1)
  1. IMPLANON [Suspect]
     Active Substance: ETONOGESTREL
     Indication: CONTRACEPTION
     Dosage: UNK
     Route: 058
     Dates: start: 20130624

REACTIONS (65)
  - Complication of device removal [Not Recovered/Not Resolved]
  - Metrorrhagia [Unknown]
  - Complication of device removal [Unknown]
  - Abdominal pain [Unknown]
  - Viral upper respiratory tract infection [Recovered/Resolved]
  - Malaise [Unknown]
  - Ear pain [Unknown]
  - Dyspnoea [Unknown]
  - Syncope [Recovered/Resolved]
  - Otitis media [Recovered/Resolved]
  - Rash [Unknown]
  - Scar [Unknown]
  - Eustachian tube dysfunction [Recovered/Resolved]
  - Contusion [Unknown]
  - Subcutaneous abscess [Unknown]
  - Arthralgia [Unknown]
  - Migraine [Unknown]
  - Palpitations [Unknown]
  - Lymphadenopathy [Recovered/Resolved]
  - Sciatica [Unknown]
  - Vomiting [Unknown]
  - Pruritus [Unknown]
  - Victim of sexual abuse [Unknown]
  - Weight increased [Unknown]
  - Menstruation irregular [Unknown]
  - Body temperature increased [Unknown]
  - Stress [Unknown]
  - Subcutaneous abscess [Unknown]
  - Gingivitis [Recovered/Resolved]
  - Muscle strain [Recovered/Resolved]
  - Urticaria [Recovered/Resolved]
  - Skin striae [Unknown]
  - Breast disorder female [Unknown]
  - Metrorrhagia [Unknown]
  - Nausea [Unknown]
  - Abdominal pain upper [Unknown]
  - Sinus disorder [Unknown]
  - Cough [Unknown]
  - Back pain [Unknown]
  - Pyrexia [Unknown]
  - Oropharyngeal pain [Recovered/Resolved]
  - Poor quality sleep [Unknown]
  - Urticaria [Unknown]
  - Device dislocation [Not Recovered/Not Resolved]
  - Neuralgia [Unknown]
  - Gastroenteritis [Unknown]
  - Pharyngitis streptococcal [Recovered/Resolved]
  - Dizziness [Recovered/Resolved]
  - Appendicitis [Unknown]
  - Incorrect product administration duration [Not Recovered/Not Resolved]
  - Abdominal discomfort [Unknown]
  - Obesity [Unknown]
  - Sexually transmitted disease [Unknown]
  - Anxiety [Unknown]
  - Rhinitis [Recovered/Resolved]
  - Dermatitis [Unknown]
  - Galactorrhoea [Unknown]
  - Complication associated with device [Recovered/Resolved]
  - Complication of device removal [Not Recovered/Not Resolved]
  - Concussion [Unknown]
  - Acne [Unknown]
  - Irritable bowel syndrome [Unknown]
  - Bronchitis [Unknown]
  - Sinusitis [Recovered/Resolved]
  - Post-traumatic stress disorder [Unknown]

NARRATIVE: CASE EVENT DATE: 201503
